FAERS Safety Report 12506122 (Version 2)
Quarter: 2016Q3

REPORT INFORMATION
  Report Type: Report from Study
  Country: NL (occurrence: NL)
  Receive Date: 20160628
  Receipt Date: 20160714
  Transmission Date: 20161109
  Serious: Yes (Hospitalization)
  Sender: FDA-Public Use
  Company Number: NL-VERTEX PHARMACEUTICALS-2016-003935

PATIENT
  Age: 40 Year
  Sex: Male

DRUGS (10)
  1. PANTOPRAZOLE [Concomitant]
     Active Substance: PANTOPRAZOLE SODIUM
     Dosage: 40 MG, QD
     Route: 048
  2. VITAMIN K [Concomitant]
     Active Substance: PHYTONADIONE
  3. ORKAMBI [Suspect]
     Active Substance: IVACAFTOR\LUMACAFTOR
     Indication: CYSTIC FIBROSIS
     Dosage: 2 (200/125 MG) DF, BID
     Route: 048
     Dates: start: 20160413, end: 20160607
  4. VITAMIN A + D [Concomitant]
     Dosage: 2 DF, BID
     Route: 048
  5. VITAMIN E [Concomitant]
     Active Substance: .ALPHA.-TOCOPHEROL
  6. AZITHROMYCIN ANHYDROUS. [Concomitant]
     Active Substance: AZITHROMYCIN ANHYDROUS
     Dosage: 250 MG, QD
     Route: 048
  7. PANCREASE MT [Concomitant]
     Active Substance: PANCRELIPASE
     Dosage: UNK, PRN
  8. COTRIMOXAZOLE [Concomitant]
     Active Substance: SULFAMETHOXAZOLE\TRIMETHOPRIM
     Dosage: 960 MG, TID
     Route: 048
  9. SERETIDE [Concomitant]
     Active Substance: FLUTICASONE PROPIONATE\SALMETEROL XINAFOATE
     Dosage: 25/250 MCG
     Route: 055
  10. INSULIN [Concomitant]
     Active Substance: INSULIN NOS
     Dosage: UNK, PRN
     Route: 058

REACTIONS (1)
  - Infective pulmonary exacerbation of cystic fibrosis [Recovered/Resolved]

NARRATIVE: CASE EVENT DATE: 20160413
